FAERS Safety Report 14031263 (Version 1)
Quarter: 2017Q4

REPORT INFORMATION
  Report Type: Spontaneous
  Country: FR (occurrence: FR)
  Receive Date: 20171003
  Receipt Date: 20171003
  Transmission Date: 20180321
  Serious: Yes (Other)
  Sender: FDA-Public Use
  Company Number: FR-MERCK KGAA-2028472

PATIENT
  Age: 65 Year
  Sex: Female

DRUGS (1)
  1. NOVOTHYROX [Suspect]
     Active Substance: LEVOTHYROXINE SODIUM
     Indication: HYPOTHYROIDISM
     Route: 048
     Dates: start: 20110701, end: 20170801

REACTIONS (3)
  - Dyspepsia [Not Recovered/Not Resolved]
  - Diarrhoea [Not Recovered/Not Resolved]
  - Anal incontinence [Not Recovered/Not Resolved]

NARRATIVE: CASE EVENT DATE: 20170401
